FAERS Safety Report 24616560 (Version 2)
Quarter: 2025Q1

REPORT INFORMATION
  Report Type: Spontaneous
  Country: DE (occurrence: DE)
  Receive Date: 20241114
  Receipt Date: 20250110
  Transmission Date: 20250409
  Serious: Yes (Hospitalization, Other)
  Sender: BOEHRINGER INGELHEIM
  Company Number: DE-BoehringerIngelheim-2024-BI-062554

PATIENT
  Age: 54 Year
  Sex: Male
  Weight: 156 kg

DRUGS (1)
  1. JARDIANCE [Suspect]
     Active Substance: EMPAGLIFLOZIN
     Indication: Type 2 diabetes mellitus
     Route: 048
     Dates: start: 2020

REACTIONS (3)
  - Ketoacidosis [Recovered/Resolved]
  - Gastroenteritis [Unknown]
  - Dehydration [Unknown]

NARRATIVE: CASE EVENT DATE: 20240916
